FAERS Safety Report 20411373 (Version 1)
Quarter: 2022Q1

REPORT INFORMATION
  Report Type: Spontaneous
  Country: GB (occurrence: GB)
  Receive Date: 20220201
  Receipt Date: 20220201
  Transmission Date: 20220423
  Serious: Yes (Hospitalization)
  Sender: FDA-Public Use
  Company Number: GB-VERTEX PHARMACEUTICALS-2022-001807

PATIENT
  Sex: Female

DRUGS (1)
  1. KALYDECO [Suspect]
     Active Substance: IVACAFTOR
     Indication: Cystic fibrosis
     Dosage: 150 MG, TABLET ONCE IN EVENING
     Route: 048

REACTIONS (4)
  - Intestinal obstruction [Unknown]
  - Illness [Unknown]
  - Hypophagia [Unknown]
  - Weight decreased [Unknown]
